FAERS Safety Report 17554602 (Version 1)
Quarter: 2020Q1

REPORT INFORMATION
  Report Type: Spontaneous
  Country: FR (occurrence: FR)
  Receive Date: 20200318
  Receipt Date: 20200318
  Transmission Date: 20200409
  Serious: Yes (Other)
  Sender: FDA-Public Use
  Company Number: NVSC2020FR072662

PATIENT
  Age: 76 Year
  Sex: Female
  Weight: 60 kg

DRUGS (7)
  1. SOLUPRED [Concomitant]
     Indication: PREMEDICATION
     Dosage: 150 MG
     Route: 048
     Dates: start: 20191126, end: 20191127
  2. PACLITAXEL. [Suspect]
     Active Substance: PACLITAXEL
     Indication: OVARIAN CANCER
     Dosage: 5.1 MG (TOTAL)
     Route: 041
     Dates: start: 20191127, end: 20191127
  3. ZOPHREN [Suspect]
     Active Substance: ONDANSETRON
     Indication: PREMEDICATION
     Dosage: 1 DF (TOTAL)
     Route: 048
     Dates: start: 20191127, end: 20191127
  4. CIMETIDINE [Suspect]
     Active Substance: CIMETIDINE
     Indication: PREMEDICATION
     Dosage: 200 MG (TOTAL)
     Route: 048
     Dates: start: 20191127, end: 20191127
  5. SOLU-MEDROL [Concomitant]
     Active Substance: METHYLPREDNISOLONE SODIUM SUCCINATE
     Indication: PREMEDICATION
     Dosage: 1 DF (TOTAL)
     Route: 042
     Dates: start: 20191127, end: 20191127
  6. ZOLPIDEM [Concomitant]
     Active Substance: ZOLPIDEM TARTRATE
     Indication: PRODUCT USED FOR UNKNOWN INDICATION
     Dosage: 10 MG, QD
     Route: 048
  7. POLARAMINE [Concomitant]
     Active Substance: DEXCHLORPHENIRAMINE MALEATE
     Indication: PREMEDICATION
     Dosage: 1 DF (TOTAL) (SOLUTION INJECTABLE)
     Route: 042
     Dates: start: 20191127, end: 20191127

REACTIONS (2)
  - Gastrointestinal pain [Recovered/Resolved]
  - Infusion related reaction [Recovered/Resolved]

NARRATIVE: CASE EVENT DATE: 20191127
